FAERS Safety Report 5266754-X (Version None)
Quarter: 2007Q1

REPORT INFORMATION
  Report Type: 
  Country: None (occurrence: None)
  Receive Date: 20070307
  Receipt Date: 20070222
  Transmission Date: 20070707
  Serious: Yes (Other)
  Sender: FDA-Public Use
  Company Number: WAES 0702USA04303

PATIENT
  Age: 21 Year
  Sex: Male

DRUGS (3)
  1. DECADRON [Suspect]
     Indication: ACUTE LYMPHOCYTIC LEUKAEMIA
  2. ELSPAR [Suspect]
     Indication: ACUTE LYMPHOCYTIC LEUKAEMIA
  3. VINCRISTINE SULFATE [Concomitant]

REACTIONS (10)
  - BACTERIAL INFECTION [None]
  - HAEMOPTYSIS [None]
  - LUNG ABSCESS [None]
  - MUCOSAL INFLAMMATION [None]
  - PHARYNGOLARYNGEAL PAIN [None]
  - PYREXIA [None]
  - RESPIRATORY FAILURE [None]
  - SUPERINFECTION [None]
  - SYSTEMIC MYCOSIS [None]
  - ZYGOMYCOSIS [None]
